FAERS Safety Report 5215562-4 (Version None)
Quarter: 2007Q1

REPORT INFORMATION
  Report Type: 
  Country: None (occurrence: None)
  Receive Date: 20070123
  Receipt Date: 20070111
  Transmission Date: 20070707
  Serious: Yes (Hospitalization, Other)
  Sender: FDA-Public Use
  Company Number: PHEH2006US11365

PATIENT
  Age: 42 Year
  Sex: Male

DRUGS (10)
  1. RISPERDAL [Suspect]
     Dates: start: 20060101
  2. CLOZARIL [Suspect]
     Indication: SCHIZOPHRENIA
     Dosage: UNK, UNK
     Dates: start: 19900101, end: 20060101
  3. CLOZARIL [Suspect]
     Dosage: 150-200 MG /D
     Route: 048
  4. CLOZARIL [Suspect]
     Dosage: 275 MG, QD
     Route: 048
     Dates: start: 20061101
  5. CLOZARIL [Suspect]
     Dosage: 250 MG/D
     Route: 048
  6. HALDOL [Concomitant]
  7. COGENTIN [Concomitant]
  8. DEPAKOTE [Concomitant]
  9. AURANTIIN [Concomitant]
  10. ARTANE [Suspect]

REACTIONS (17)
  - ABNORMAL BEHAVIOUR [None]
  - AGGRESSION [None]
  - CONSTIPATION [None]
  - DEPRESSION [None]
  - DROOLING [None]
  - DYSSTASIA [None]
  - FALL [None]
  - FATIGUE [None]
  - GAIT DISTURBANCE [None]
  - HEADACHE [None]
  - NAUSEA [None]
  - POLLAKIURIA [None]
  - PRURITUS GENERALISED [None]
  - PSYCHOTIC DISORDER [None]
  - SOMNOLENCE [None]
  - SPEECH DISORDER [None]
  - VERTIGO [None]
